FAERS Safety Report 5084583-7 (Version None)
Quarter: 2006Q3

REPORT INFORMATION
  Report Type: 
  Country: None (occurrence: None)
  Receive Date: 20060821
  Receipt Date: 20060515
  Transmission Date: 20061208
  Serious: Yes (Life-Threatening, Hospitalization)
  Sender: FDA-Public Use
  Company Number: 2006SE02779

PATIENT
  Age: 27905 Day
  Sex: Female

DRUGS (8)
  1. BLOPRESS TABLETS 4 [Suspect]
     Indication: HYPERTENSION
     Route: 048
     Dates: start: 20060401, end: 20060502
  2. TRYPTANOL [Concomitant]
     Route: 048
  3. NEUROTROPIN [Concomitant]
     Route: 065
  4. SEPAZON [Concomitant]
     Route: 048
  5. PURSENNID [Concomitant]
     Route: 048
  6. ALOSENN [Concomitant]
     Route: 048
  7. AMOBAN [Concomitant]
     Route: 048
  8. AMLODIN [Concomitant]
     Route: 048

REACTIONS (1)
  - INTERSTITIAL LUNG DISEASE [None]
